FAERS Safety Report 6732240-0 (Version None)
Quarter: 2010Q2

REPORT INFORMATION
  Report Type: 
  Country: None (occurrence: None)
  Receive Date: 20100519
  Receipt Date: 20100512
  Transmission Date: 20101027
  Serious: Yes (Other)
  Sender: FDA-Public Use
  Company Number: A0859395A

PATIENT
  Age: 71 Year
  Sex: Male

DRUGS (13)
  1. PROPAFENONE HCL [Suspect]
     Indication: ATRIAL FIBRILLATION
     Dosage: 1TAB TWICE PER DAY
     Route: 048
     Dates: start: 20070101, end: 20070101
  2. RYTHMOL [Concomitant]
     Indication: ATRIAL FIBRILLATION
     Dosage: 1TAB TWICE PER DAY
     Route: 048
     Dates: start: 20020101
  3. LOVAZA [Concomitant]
  4. SIMVASTATIN [Concomitant]
  5. PLAVIX [Concomitant]
  6. METOPROLOL TARTRATE [Concomitant]
  7. UNSPECIFIED MEDICATION [Concomitant]
  8. FINASTERIDE [Concomitant]
  9. HYDROCHLOROTHIAZIDE [Concomitant]
  10. LISINOPRIL [Concomitant]
  11. ALLOPURINOL [Concomitant]
  12. ASPIRIN [Concomitant]
  13. ONE A DAY VITAMIN [Concomitant]

REACTIONS (2)
  - ADVERSE EVENT [None]
  - ATRIAL FIBRILLATION [None]
